FAERS Safety Report 4621169-X (Version None)
Quarter: 2005Q1

REPORT INFORMATION
  Report Type: 
  Country: None (occurrence: None)
  Receive Date: 20050328
  Receipt Date: 20050310
  Transmission Date: 20050727
  Serious: Yes (Hospitalization)
  Sender: FDA-Public Use
  Company Number: 200510618GDS

PATIENT
  Age: 16 Year
  Sex: Male

DRUGS (2)
  1. ASPIRIN [Suspect]
     Indication: PHARYNGOLARYNGEAL PAIN
     Dosage: 500 MG, QD, ORAL
     Route: 048
     Dates: start: 20050218, end: 20050225
  2. VIVIN C [Suspect]
     Indication: PHARYNGOLARYNGEAL PAIN
     Dosage: 530 MG, TOTAL DAILY, ORAL
     Route: 048
     Dates: start: 20050218, end: 20050225

REACTIONS (4)
  - ASTHENIA [None]
  - DIZZINESS [None]
  - EPISTAXIS [None]
  - MELAENA [None]
